FAERS Safety Report 5964181-0 (Version None)
Quarter: 2008Q4

REPORT INFORMATION
  Report Type: 
  Country: None (occurrence: None)
  Receive Date: 20081124
  Receipt Date: 20081118
  Transmission Date: 20090506
  Serious: Yes (Hospitalization)
  Sender: FDA-Public Use
  Company Number: US-AMGEN-US319600

PATIENT
  Sex: Male

DRUGS (13)
  1. EPOGEN [Suspect]
     Indication: RENAL FAILURE CHRONIC
     Dates: start: 20070101
  2. RENAGEL [Concomitant]
  3. LEXAPRO [Concomitant]
  4. NEPHRO-VITE [Concomitant]
  5. PEPCID [Concomitant]
  6. METHYLPREDNISOLONE 16MG TAB [Concomitant]
  7. LABETALOL HCL [Concomitant]
  8. XANAX [Concomitant]
  9. NYSTATIN [Concomitant]
  10. RESTORIL [Concomitant]
  11. BACTRIM [Concomitant]
  12. TYLENOL (CAPLET) [Concomitant]
  13. SENSIPAR [Concomitant]
     Indication: DRUG USE FOR UNKNOWN INDICATION

REACTIONS (7)
  - HAEMATOCRIT DECREASED [None]
  - HERPES ZOSTER [None]
  - PERICARDIAL EFFUSION [None]
  - PNEUMOCYSTIS JIROVECI PNEUMONIA [None]
  - PULMONARY OEDEMA [None]
  - PYREXIA [None]
  - REMOVAL OF RENAL TRANSPLANT [None]
